FAERS Safety Report 10024053 (Version 1)
Quarter: 2014Q1

REPORT INFORMATION
  Report Type: Spontaneous
  Country: US (occurrence: None)
  Receive Date: 20140318
  Receipt Date: 20140318
  Transmission Date: 20141002
  Serious: Yes (Hospitalization, Other)
  Sender: FDA-Public Use
  Company Number: None

PATIENT
  Age: 62 Year
  Sex: Male
  Weight: 81 kg

DRUGS (11)
  1. RADIUM CHLORIDE RA-223 [Suspect]
     Indication: METASTASES TO BONE
     Dosage: 50 KBQ/KG, Q4 WEEKS X 6 DOSES
     Route: 042
     Dates: start: 20130823, end: 20131122
  2. RADIUM CHLORIDE RA-223 [Suspect]
     Indication: PROSTATE CANCER METASTATIC
     Dosage: 50 KBQ/KG, Q4 WEEKS X 6 DOSES
     Route: 042
     Dates: start: 20130823, end: 20131122
  3. CETIRIZINE [Concomitant]
  4. PREDNISONE [Concomitant]
  5. JALYN [Concomitant]
  6. OXYCODONE [Concomitant]
  7. OMEPRAZOLE [Concomitant]
  8. ONDANSETRON [Concomitant]
  9. POLYETHYLENE GLYCOL [Concomitant]
  10. SENNA [Concomitant]
  11. LOTRISONE [Concomitant]

REACTIONS (2)
  - Pancytopenia [None]
  - Prostate cancer [None]
